FAERS Safety Report 9989194 (Version 1)
Quarter: 2014Q1

REPORT INFORMATION
  Report Type: Spontaneous
  Country: DE (occurrence: DE)
  Receive Date: 20140310
  Receipt Date: 20140310
  Transmission Date: 20141002
  Serious: Yes (Other)
  Sender: FDA-Public Use
  Company Number: DE-ELI_LILLY_AND_COMPANY-DE201402009314

PATIENT
  Age: 30 Year
  Sex: Female

DRUGS (1)
  1. ZYPADHERA [Suspect]
     Indication: MENTAL DISORDER
     Dosage: 405 MG, CYCLICAL
     Route: 030

REACTIONS (3)
  - Cardiovascular disorder [Recovered/Resolved]
  - Chills [Recovered/Resolved]
  - Nausea [Recovered/Resolved]
